FAERS Safety Report 4510985-0 (Version None)
Quarter: 2004Q3

REPORT INFORMATION
  Report Type: 
  Country: None (occurrence: None)
  Receive Date: 20040928
  Receipt Date: 20040819
  Transmission Date: 20050211
  Serious: Yes (Hospitalization)
  Sender: FDA-Public Use
  Company Number: 04P-163-0271093-00

PATIENT
  Age: 97 Year
  Sex: Female
  Weight: 43.9989 kg

DRUGS (8)
  1. HUMIRA [Suspect]
     Indication: RHEUMATOID ARTHRITIS
     Dosage: 40 MG, 1 IN 2 WK, SUBCUTANEOUS
     Route: 058
     Dates: start: 20040301
  2. PREDNISONE [Concomitant]
  3. FOLIC ACID [Concomitant]
  4. METHOTREXATE SODIUM [Concomitant]
  5. LEVOTHYROXINE SODIUM [Concomitant]
  6. ALENDRONATE SODIUM [Concomitant]
  7. CYANOCOBALAMIN [Concomitant]
  8. DONEPEZIL HCL [Concomitant]

REACTIONS (2)
  - PELVIC FRACTURE [None]
  - SPINAL COMPRESSION FRACTURE [None]
